FAERS Safety Report 23103963 (Version 2)
Quarter: 2023Q4

REPORT INFORMATION
  Report Type: Spontaneous
  Country: GB (occurrence: GB)
  Receive Date: 20231025
  Receipt Date: 20231120
  Transmission Date: 20240109
  Serious: Yes (Hospitalization, Other)
  Sender: FDA-Public Use
  Company Number: GB-ROCHE-2552993

PATIENT
  Age: 79 Year
  Sex: Female
  Weight: 87.9 kg

DRUGS (487)
  1. ATEZOLIZUMAB [Suspect]
     Active Substance: ATEZOLIZUMAB
     Dosage: 1200 MG, Q3WK (CUMULATIVE DOSE: 342.857 MG)
     Route: 042
     Dates: start: 20200406
  2. ATEZOLIZUMAB [Suspect]
     Active Substance: ATEZOLIZUMAB
     Indication: Transitional cell carcinoma
     Dosage: 1200 MILLIGRAM, 0.33/WEEK INTERVAL (SUBSEQUENTLY, DOSE ON 09/MAR/2020, 06/APR/2020 AND 27/APR/2020,
     Route: 042
     Dates: start: 20200210
  3. ATEZOLIZUMAB [Suspect]
     Active Substance: ATEZOLIZUMAB
     Dosage: 1200 MG, Q3W (CUMULATIVE DOSE TO FIRST REACTION: 342.85715 MG)
     Route: 042
     Dates: start: 20200210, end: 20200210
  4. ATEZOLIZUMAB [Suspect]
     Active Substance: ATEZOLIZUMAB
     Dosage: 1200 MG, Q3W (CUMULATIVE DOSE: 4169.048 MG)
     Route: 042
     Dates: start: 20200427, end: 20200625
  5. ATEZOLIZUMAB [Suspect]
     Active Substance: ATEZOLIZUMAB
     Dosage: 1200 MG, Q3W (CUMULATIVE DOSE: 44683.332 MG)
     Route: 042
     Dates: start: 20220406
  6. ATEZOLIZUMAB [Suspect]
     Active Substance: ATEZOLIZUMAB
     Dosage: 1200 MG, Q3W (CUMULATIVE DOSE: 44683.332 MG)
     Route: 065
     Dates: start: 20200427, end: 20200427
  7. ATEZOLIZUMAB [Suspect]
     Active Substance: ATEZOLIZUMAB
     Dosage: 1200 MILLIGRAM
     Route: 042
  8. ATEZOLIZUMAB [Suspect]
     Active Substance: ATEZOLIZUMAB
     Dosage: 1200 MILLIGRAM, Q3WK
     Route: 042
  9. ATEZOLIZUMAB [Suspect]
     Active Substance: ATEZOLIZUMAB
     Dosage: 1200 MILLIGRAM, Q3WK
     Route: 042
  10. ATEZOLIZUMAB [Suspect]
     Active Substance: ATEZOLIZUMAB
     Dosage: 2400 MG, QW (CUMULATIVE DOSE TO FIRST REACTION: 685.7143 MG)
     Route: 042
     Dates: start: 20200406, end: 20200625
  11. ATEZOLIZUMAB [Suspect]
     Active Substance: ATEZOLIZUMAB
     Dosage: 2400 MG, QW (CUMULATIVE DOSE TO FIRST REACTION: 685.7143 MG; CUMULATIVE DOSE TO FIRST REACTION: 342.
     Route: 042
  12. ATEZOLIZUMAB [Suspect]
     Active Substance: ATEZOLIZUMAB
     Dosage: 3600 MG, QW (1200 MILLIGRAM, Q3WK)
     Route: 042
     Dates: start: 20200309, end: 20200625
  13. ATEZOLIZUMAB [Suspect]
     Active Substance: ATEZOLIZUMAB
     Dosage: UNK (CUMULATIVE DOSE- 2057.142 MILLIGRAM)
     Route: 042
     Dates: start: 20200625
  14. ATEZOLIZUMAB [Suspect]
     Active Substance: ATEZOLIZUMAB
     Dosage: UNK, CUMULATIVE DOSE TO FIRST REACTION: 342.857 MG
     Route: 042
     Dates: start: 20200518
  15. ATEZOLIZUMAB [Suspect]
     Active Substance: ATEZOLIZUMAB
     Dosage: 3600 MILLIGRAM, QWK
     Route: 042
  16. ATEZOLIZUMAB [Suspect]
     Active Substance: ATEZOLIZUMAB
     Dosage: UNK
     Route: 065
     Dates: start: 20200625
  17. ATEZOLIZUMAB [Suspect]
     Active Substance: ATEZOLIZUMAB
     Dosage: UNK (8 JUN 2020 AND 18 MAY 2020,25 JUN 2020 THE PATIENT RECEIVED MOST RECENT DOSE OF ATEZOLIZUMAB(12
     Route: 065
  18. ATEZOLIZUMAB [Suspect]
     Active Substance: ATEZOLIZUMAB
     Dosage: UNK (8 JUN 2020 AND 18 MAY 2020,25 JUN 2020 THE PATIENT RECEIVED MOST RECENT DOSE OF ATEZOLIZUMAB(12
     Route: 065
  19. ATEZOLIZUMAB [Suspect]
     Active Substance: ATEZOLIZUMAB
     Indication: Transitional cell carcinoma
     Dosage: UNK (CUMULATIVE DOSE- 2057.142 MILLIGRAMS)
     Route: 042
  20. ATEZOLIZUMAB [Suspect]
     Active Substance: ATEZOLIZUMAB
     Dosage: UNK (CUMULATIVE DOSE- 2057.142 MILLIGRAMS)
     Route: 042
     Dates: start: 20200718
  21. ATEZOLIZUMAB [Suspect]
     Active Substance: ATEZOLIZUMAB
     Dosage: UNK (CUMULATIVE DOSE- 2057.142 MILLIGRAMS; CUMULATIVE DOSE TO FIRST REACTION: 342.857 MG
     Route: 042
  22. ATEZOLIZUMAB [Suspect]
     Active Substance: ATEZOLIZUMAB
     Dosage: 1200 MILLIGRAM, 2/WEEK; CUMULATIVE DOSE TO FIRST REACTION: 685.7143 MG
     Route: 042
  23. ATEZOLIZUMAB [Suspect]
     Active Substance: ATEZOLIZUMAB
     Dosage: 1200 MILLIGRAM, Q2WK; 1200 MILLIGRAM, Q2WK; CUMULATIVE DOSE TO FIRST REACTION: 342.85715 MG
     Route: 042
  24. ATEZOLIZUMAB [Suspect]
     Active Substance: ATEZOLIZUMAB
     Dosage: 1200 MG, Q3W
     Route: 042
     Dates: start: 20200427, end: 20200625
  25. ATEZOLIZUMAB [Suspect]
     Active Substance: ATEZOLIZUMAB
     Dosage: 1200 MILLIGRAM, Q3WK
     Route: 041
     Dates: end: 20200406
  26. ATEZOLIZUMAB [Suspect]
     Active Substance: ATEZOLIZUMAB
     Dosage: 1200 MILLIGRAM, Q3WK
     Route: 042
     Dates: end: 20200309
  27. ATEZOLIZUMAB [Suspect]
     Active Substance: ATEZOLIZUMAB
     Indication: Product used for unknown indication
     Dosage: UNK CUMULATIVE DOSE: 342.857
     Route: 042
     Dates: start: 20200606
  28. ATEZOLIZUMAB [Suspect]
     Active Substance: ATEZOLIZUMAB
     Dosage: 1200 MILLIGRAM, Q3WK
     Route: 042
     Dates: start: 20200309
  29. ATEZOLIZUMAB [Suspect]
     Active Substance: ATEZOLIZUMAB
     Dosage: CUMULATIVE DOSE TO FIRST REACTION: 2057.1428 MG; 3600 MILLIGRAM, QW
     Route: 042
  30. ATEZOLIZUMAB [Suspect]
     Active Substance: ATEZOLIZUMAB
     Dosage: CUMULATIVE DOSE TO FIRST REACTION: 2057.1428 MG; SUBSEQUENTLY, DOSE ON 09/MAR/2020, 06/APR/2020 AND
     Route: 042
  31. ATEZOLIZUMAB [Suspect]
     Active Substance: ATEZOLIZUMAB
     Dosage: 1200 MG, Q3WK (CUMULATIVE DOSE: 228.57143 MG)
     Route: 042
     Dates: start: 20200210
  32. ATEZOLIZUMAB [Suspect]
     Active Substance: ATEZOLIZUMAB
     Dosage: 2400 MG, QW (CUMULATIVE DOSE TO FIRST REACTION: 685.7143 MG)
     Route: 042
  33. ATEZOLIZUMAB [Suspect]
     Active Substance: ATEZOLIZUMAB
     Dosage: 2400 MG, QW (SUBSEQUENTLY, DOSE ON 09 MAR 2020, 06 APR 2020 AND 27 APR 2020)
     Route: 042
     Dates: start: 20200406
  34. ATEZOLIZUMAB [Suspect]
     Active Substance: ATEZOLIZUMAB
     Dosage: 3600 MG, QW
     Route: 065
     Dates: start: 20200518
  35. ATEZOLIZUMAB [Suspect]
     Active Substance: ATEZOLIZUMAB
     Dosage: 3600 MG, QW (CUMULATIVE DOSE TO FIRST REACTION: 2057.1428 MG; 3600 MILLIGRAM, QW)
     Route: 042
     Dates: start: 20200625
  36. ATEZOLIZUMAB [Suspect]
     Active Substance: ATEZOLIZUMAB
     Dosage: 3600 MG, QW (CUMULATIVE DOSE TO FIRST REACTION: 2057.1428 MG)
     Route: 042
     Dates: start: 20200210
  37. ATEZOLIZUMAB [Suspect]
     Active Substance: ATEZOLIZUMAB
     Indication: Non-small cell lung cancer
     Dosage: UNK
     Route: 065
  38. ATEZOLIZUMAB [Suspect]
     Active Substance: ATEZOLIZUMAB
     Dosage: UNK (8 JUN 2020 AND 18 MAY 2020,25 JUN 2020 THE PATIENT RECEIVED MOST RECENT DOSE OF ATEZOLIZUMAB(12
     Route: 065
  39. ATEZOLIZUMAB [Suspect]
     Active Substance: ATEZOLIZUMAB
     Dosage: UNK (CUMULATIVE DOSE- 2057.142 MILLIGRAMS)
     Route: 065
     Dates: start: 20200718
  40. BENDAMUSTINE [Suspect]
     Active Substance: BENDAMUSTINE
     Route: 065
  41. BENDAMUSTINE [Suspect]
     Active Substance: BENDAMUSTINE
     Dosage: 180 MILLIGRAM, QD
     Route: 042
     Dates: start: 20210706
  42. BENDAMUSTINE [Suspect]
     Active Substance: BENDAMUSTINE
     Dosage: CUMULATIVE DOSE- 22672.5 MILLIGRAMS
     Route: 065
  43. BENDAMUSTINE [Suspect]
     Active Substance: BENDAMUSTINE
     Dosage: UNK
     Route: 065
  44. BENDAMUSTINE [Suspect]
     Active Substance: BENDAMUSTINE
     Dosage: UNK
     Route: 065
  45. BENDAMUSTINE [Suspect]
     Active Substance: BENDAMUSTINE
     Dosage: UNK (CUMULATIVE DOSE- 22672.5 MILLIGRAMS)
     Route: 065
  46. BENDAMUSTINE [Suspect]
     Active Substance: BENDAMUSTINE
     Indication: Follicular lymphoma
     Dosage: 180 MILLIGRAM, QD (CUMULATIVE DOSE TO FIRST REACTION: 69840.0 MG)
     Route: 042
     Dates: start: 20210308
  47. BENDAMUSTINE [Suspect]
     Active Substance: BENDAMUSTINE
     Dosage: 180 MG EVERY DAY (PHARMACEUTICAL DOSE FORM: 15)
     Route: 042
     Dates: start: 20210308
  48. BENDAMUSTINE [Suspect]
     Active Substance: BENDAMUSTINE
     Dosage: 180 MG EVERY DAY (PHARMACEUTICAL DOSE FORM: 15)
     Route: 065
     Dates: start: 20210308
  49. BENDAMUSTINE [Suspect]
     Active Substance: BENDAMUSTINE
     Dosage: 180 MG, QD
     Route: 065
     Dates: start: 20210308
  50. BENDAMUSTINE [Suspect]
     Active Substance: BENDAMUSTINE
     Dosage: 180 MILLIGRAM, QD (CUMULATIVE DOSE TO FIRST REACTION: 69840.0 MG)
     Route: 065
     Dates: start: 20210308
  51. BENDAMUSTINE [Suspect]
     Active Substance: BENDAMUSTINE
     Dosage: 180 MG
     Route: 065
     Dates: start: 20210706
  52. BENDAMUSTINE [Suspect]
     Active Substance: BENDAMUSTINE
     Dosage: CUMULATIVE DOSE- 22672.5  MILLIGRAMS
     Route: 065
  53. BENDAMUSTINE [Suspect]
     Active Substance: BENDAMUSTINE
     Dosage: UNK
     Route: 065
  54. BENDAMUSTINE [Suspect]
     Active Substance: BENDAMUSTINE
     Dosage: UNK (CUMULATIVE DOSE- 22672.5 MILLIGRAMS)
     Route: 065
  55. BENDAMUSTINE HYDROCHLORIDE [Suspect]
     Active Substance: BENDAMUSTINE HYDROCHLORIDE
     Indication: Follicular lymphoma
     Dosage: 180 MG
     Route: 042
     Dates: start: 20210706
  56. BENDAMUSTINE HYDROCHLORIDE [Suspect]
     Active Substance: BENDAMUSTINE HYDROCHLORIDE
     Dosage: 180 MILLIGRAM
     Route: 065
  57. BENDAMUSTINE HYDROCHLORIDE [Suspect]
     Active Substance: BENDAMUSTINE HYDROCHLORIDE
     Indication: Follicular lymphoma stage IV
     Dosage: 90 MG/M2, EVERY DAY (SUBSEQUENT DOSE (90 MG/M2) BENDAMUSTINE ON 06/APR/2021 TO 07/APR/2021, 04/MAY/2
     Route: 042
     Dates: start: 20210308
  58. BENDAMUSTINE HYDROCHLORIDE [Suspect]
     Active Substance: BENDAMUSTINE HYDROCHLORIDE
     Dosage: UNK
     Route: 042
  59. BENDAMUSTINE HYDROCHLORIDE [Suspect]
     Active Substance: BENDAMUSTINE HYDROCHLORIDE
     Dosage: UNK
     Route: 065
  60. BENDAMUSTINE HYDROCHLORIDE [Suspect]
     Active Substance: BENDAMUSTINE HYDROCHLORIDE
     Dosage: UNK
     Route: 065
  61. BENDAMUSTINE HYDROCHLORIDE [Suspect]
     Active Substance: BENDAMUSTINE HYDROCHLORIDE
     Dosage: UNK
     Route: 065
  62. BENDAMUSTINE HYDROCHLORIDE [Suspect]
     Active Substance: BENDAMUSTINE HYDROCHLORIDE
     Dosage: UNK
     Route: 065
  63. BENDAMUSTINE HYDROCHLORIDE [Suspect]
     Active Substance: BENDAMUSTINE HYDROCHLORIDE
     Dosage: UNK (CUMULATIVE DOSE: 69840 MG)
     Route: 042
  64. BENDAMUSTINE HYDROCHLORIDE [Suspect]
     Active Substance: BENDAMUSTINE HYDROCHLORIDE
     Dosage: UNK (CUMULATIVE DOSE: 69840 MG)
     Route: 065
  65. BENDAMUSTINE HYDROCHLORIDE [Suspect]
     Active Substance: BENDAMUSTINE HYDROCHLORIDE
     Dosage: UNK
     Route: 065
  66. BENDAMUSTINE HYDROCHLORIDE [Suspect]
     Active Substance: BENDAMUSTINE HYDROCHLORIDE
     Dosage: 90 MG/M2, QD SUBSEQUENT DOSE (90 MG/M2) BENDAMUSTINE ON 06/APR/2021 TO 07/APR/2021, 04/MAY/2021 TO 0
     Route: 042
     Dates: start: 20210308
  67. BENDAMUSTINE HYDROCHLORIDE [Suspect]
     Active Substance: BENDAMUSTINE HYDROCHLORIDE
     Dosage: UNK
     Route: 042
  68. BENDAMUSTINE HYDROCHLORIDE [Suspect]
     Active Substance: BENDAMUSTINE HYDROCHLORIDE
     Dosage: UNK
     Route: 065
  69. BENDAMUSTINE HYDROCHLORIDE [Suspect]
     Active Substance: BENDAMUSTINE HYDROCHLORIDE
     Dosage: UNK
     Route: 065
  70. BEVACIZUMAB [Suspect]
     Active Substance: BEVACIZUMAB
     Dosage: 1200 MG, QW (1200 MILLIGRAM, BIWEEKLY; CUMULATIVE DOSE TO FIRST REACTION: 44396.43 MG)
     Route: 042
     Dates: start: 20200210
  71. BEVACIZUMAB [Suspect]
     Active Substance: BEVACIZUMAB
     Dosage: 1200 MILLIGRAM, QWK
     Route: 042
  72. BEVACIZUMAB [Suspect]
     Active Substance: BEVACIZUMAB
     Dosage: 1200 MILLIGRAM, QWK
     Route: 042
  73. BEVACIZUMAB [Suspect]
     Active Substance: BEVACIZUMAB
     Dosage: 1200 MG, 2 WEEK; CUMULATIVE DOSE TO FIRST REACTION: 342.85715 MG
     Route: 042
     Dates: start: 20200210
  74. BEVACIZUMAB [Suspect]
     Active Substance: BEVACIZUMAB
     Dosage: 1200 MG, 2 WEEK; CUMULATIVE DOSE TO FIRST REACTION: 342.85715 MG
     Route: 042
     Dates: start: 20200210
  75. BEVACIZUMAB [Suspect]
     Active Substance: BEVACIZUMAB
     Dosage: 1200 MILLIGRAM, BIWEEKLY; CUMULATIVE DOSE TO FIRST REACTION: 44396.43 MG
     Route: 042
     Dates: start: 20200210
  76. BEVACIZUMAB [Suspect]
     Active Substance: BEVACIZUMAB
     Dosage: CUMULATIVE DOSE TO FIRST REACTION: 134400.0 MG 2400 MILLIGRAM, QWK2400 MILLIGRAM, QWK
     Route: 042
     Dates: start: 20200210
  77. BEVACIZUMAB [Suspect]
     Active Substance: BEVACIZUMAB
     Dosage: 2400 MG, QW (1200 MILLIGRAM, BIWEEKLY) CUMULATIVE DOSE: 1371.4286 MG
     Route: 042
  78. BEVACIZUMAB [Suspect]
     Active Substance: BEVACIZUMAB
     Dosage: UNK2400 MG, QW (1200 MILLIGRAM, BIWEEKLY)
     Route: 042
  79. BEVACIZUMAB [Suspect]
     Active Substance: BEVACIZUMAB
     Dosage: CUMULATIVE DOSE TO FIRST REACTION: 22400.0.0 MG 2400 MILLIGRAM, QWK2400 MILLIGRAM, QWK
     Route: 042
     Dates: start: 20200210
  80. BEVACIZUMAB [Suspect]
     Active Substance: BEVACIZUMAB
     Dosage: UNK
     Route: 065
  81. BEVACIZUMAB [Suspect]
     Active Substance: BEVACIZUMAB
     Dosage: UNK
     Route: 065
  82. BEVACIZUMAB [Suspect]
     Active Substance: BEVACIZUMAB
     Dosage: UNK
     Route: 065
  83. BEVACIZUMAB [Suspect]
     Active Substance: BEVACIZUMAB
     Dosage: UNK
     Route: 065
  84. BEVACIZUMAB [Suspect]
     Active Substance: BEVACIZUMAB
     Dosage: UNK (CUMULATIVE DOSE TO FIRST REACTION: 685.714 MILLIGRAMS)
     Route: 042
  85. BEVACIZUMAB [Suspect]
     Active Substance: BEVACIZUMAB
     Dosage: UNK UNK, 2/WEEK
     Route: 065
  86. BEVACIZUMAB [Suspect]
     Active Substance: BEVACIZUMAB
     Dosage: UNK, CUMULATIVE DOSE TO FIRST REACTION- 685.714 MILLIGRAM
     Route: 042
  87. BEVACIZUMAB [Suspect]
     Active Substance: BEVACIZUMAB
     Dosage: 1100 MILLIGRAM CUMULATIVE DOSE TO FIRST REACTION: 685.714 MILLIGRAMS
     Route: 042
     Dates: start: 20200210
  88. BEVACIZUMAB [Suspect]
     Active Substance: BEVACIZUMAB
     Dosage: 1100 MILLIGRAM
     Route: 042
     Dates: start: 20200210
  89. BEVACIZUMAB [Suspect]
     Active Substance: BEVACIZUMAB
     Dosage: 1200 MG, 1 WEEK; CUMULATIVE DOSE TO FIRST REACTION: 685.7143 MG
     Route: 042
     Dates: start: 20200210
  90. BEVACIZUMAB [Suspect]
     Active Substance: BEVACIZUMAB
     Dosage: 1200 MG, 2 WEEK; CUMULATIVE DOSE TO FIRST REACTION: 342.85715 MG
     Route: 042
     Dates: start: 20200210
  91. BEVACIZUMAB [Suspect]
     Active Substance: BEVACIZUMAB
     Indication: Transitional cell carcinoma
     Dosage: 1200 MG, 3 WEEK; CUMULATIVE DOSE TO FIRST REACTION: 228.57143 MG
     Route: 042
     Dates: start: 20200210
  92. BEVACIZUMAB [Suspect]
     Active Substance: BEVACIZUMAB
     Dosage: 1200 MG, 3 WEEK; CUMULATIVE DOSE TO FIRST REACTION: 228.57143 MG
     Route: 042
     Dates: start: 20200210
  93. BEVACIZUMAB [Suspect]
     Active Substance: BEVACIZUMAB
     Dosage: 1200 MILLIGRAM, QW
     Route: 042
     Dates: start: 20200210
  94. BEVACIZUMAB [Suspect]
     Active Substance: BEVACIZUMAB
     Indication: Non-small cell lung cancer
     Dosage: 1200 MILLIGRAM, QW (CUMULATIVE DOSE TO FIRST REACTION: 88792.86 MG)
     Route: 042
     Dates: start: 20200210
  95. BEVACIZUMAB [Suspect]
     Active Substance: BEVACIZUMAB
     Dosage: 1200 MG, 2 WEEK; CUMULATIVE DOSE TO FIRST REACTION: 342.85715 MG
     Route: 042
     Dates: start: 20200210
  96. BEVACIZUMAB [Suspect]
     Active Substance: BEVACIZUMAB
     Dosage: 1200 MILLIGRAM, BIWEEKLY
     Route: 042
     Dates: start: 20200210
  97. BEVACIZUMAB [Suspect]
     Active Substance: BEVACIZUMAB
     Dosage: 1200 MILLIGRAM, 3XW (CUMULATIVE DOSE TO FIRST REACTION: 266378.56 MG)
     Route: 042
     Dates: start: 20200210
  98. BEVACIZUMAB [Suspect]
     Active Substance: BEVACIZUMAB
     Dosage: UNK
     Route: 065
  99. BEVACIZUMAB [Suspect]
     Active Substance: BEVACIZUMAB
     Indication: Transitional cell carcinoma
     Dosage: UNK (CUMULATIVE DOSE TO FIRST REACTION: 685.714 MILLIGRAMS)
     Route: 042
  100. BEVACIZUMAB [Suspect]
     Active Substance: BEVACIZUMAB
     Dosage: UNK, CUMULATIVE DOSE TO FIRST REACTION- 685.714 MILLIGRAM
     Route: 042
  101. CARBOPLATIN [Suspect]
     Active Substance: CARBOPLATIN
     Dosage: 630 MG
     Route: 042
     Dates: start: 20200210
  102. CARBOPLATIN [Suspect]
     Active Substance: CARBOPLATIN
     Dosage: 630 MILLIGRAM
     Route: 042
     Dates: start: 20210210
  103. CARBOPLATIN [Suspect]
     Active Substance: CARBOPLATIN
     Dosage: UNK
     Route: 042
  104. CARBOPLATIN [Suspect]
     Active Substance: CARBOPLATIN
     Dosage: UNK
     Route: 042
  105. CARBOPLATIN [Suspect]
     Active Substance: CARBOPLATIN
     Dosage: UNK
     Route: 065
  106. CARBOPLATIN [Suspect]
     Active Substance: CARBOPLATIN
     Dosage: UNK
     Route: 065
  107. CARBOPLATIN [Suspect]
     Active Substance: CARBOPLATIN
     Dosage: UNK
     Route: 065
  108. CARBOPLATIN [Suspect]
     Active Substance: CARBOPLATIN
     Dosage: UNK
     Route: 065
  109. CARBOPLATIN [Suspect]
     Active Substance: CARBOPLATIN
     Dosage: UNK
     Route: 065
  110. CARBOPLATIN [Suspect]
     Active Substance: CARBOPLATIN
     Dosage: UNK
     Route: 065
  111. CARBOPLATIN [Suspect]
     Active Substance: CARBOPLATIN
     Dosage: UNK
     Route: 065
  112. CARBOPLATIN [Suspect]
     Active Substance: CARBOPLATIN
     Dosage: 630 MG
     Route: 042
     Dates: start: 20200210
  113. CARBOPLATIN [Suspect]
     Active Substance: CARBOPLATIN
     Indication: Transitional cell carcinoma
     Dosage: UNK
     Route: 065
  114. CARBOPLATIN [Suspect]
     Active Substance: CARBOPLATIN
     Dosage: UNK
     Route: 065
  115. CARBOPLATIN [Suspect]
     Active Substance: CARBOPLATIN
     Dosage: UNK
     Route: 065
  116. CARBOPLATIN [Suspect]
     Active Substance: CARBOPLATIN
     Dosage: UNK
     Route: 065
  117. CARBOPLATIN [Suspect]
     Active Substance: CARBOPLATIN
     Dosage: UNK
     Route: 065
  118. CARBOPLATIN [Suspect]
     Active Substance: CARBOPLATIN
     Dosage: UNK
     Route: 065
  119. DIHYDROCODEINE BITARTRATE [Suspect]
     Active Substance: DIHYDROCODEINE BITARTRATE
     Route: 065
  120. DIHYDROCODEINE BITARTRATE [Suspect]
     Active Substance: DIHYDROCODEINE BITARTRATE
     Dosage: 1 DOSAGE FORM, QD
     Route: 065
  121. DIHYDROCODEINE BITARTRATE [Suspect]
     Active Substance: DIHYDROCODEINE BITARTRATE
     Dosage: 1 DOSAGE FORM, QD
     Route: 065
  122. DIHYDROCODEINE BITARTRATE [Suspect]
     Active Substance: DIHYDROCODEINE BITARTRATE
     Dosage: 1 DOSAGE FORM, QD
     Route: 065
  123. DIHYDROCODEINE BITARTRATE [Suspect]
     Active Substance: DIHYDROCODEINE BITARTRATE
     Dosage: 1 DOSAGE FORM, QD
     Route: 065
  124. DIHYDROCODEINE BITARTRATE [Suspect]
     Active Substance: DIHYDROCODEINE BITARTRATE
     Dosage: 1 DOSAGE FORM, QD
     Route: 065
  125. DIHYDROCODEINE BITARTRATE [Suspect]
     Active Substance: DIHYDROCODEINE BITARTRATE
     Dosage: 1 DOSAGE FORM, QD
     Route: 065
  126. DIHYDROCODEINE BITARTRATE [Suspect]
     Active Substance: DIHYDROCODEINE BITARTRATE
     Dosage: UNK
     Route: 065
  127. DIHYDROCODEINE BITARTRATE [Suspect]
     Active Substance: DIHYDROCODEINE BITARTRATE
     Route: 065
  128. DIHYDROCODEINE BITARTRATE [Suspect]
     Active Substance: DIHYDROCODEINE BITARTRATE
     Indication: Visual impairment
     Dosage: 1 DOSAGE FORM, QD
     Route: 065
  129. DIHYDROCODEINE BITARTRATE [Suspect]
     Active Substance: DIHYDROCODEINE BITARTRATE
     Dosage: 1 DOSAGE FORM, QD
     Route: 065
  130. DIHYDROCODEINE BITARTRATE [Suspect]
     Active Substance: DIHYDROCODEINE BITARTRATE
     Dosage: 1 DOSAGE FORM, QD
     Route: 065
  131. DIHYDROCODEINE BITARTRATE [Suspect]
     Active Substance: DIHYDROCODEINE BITARTRATE
     Dosage: 1 DOSAGE FORM, QD
     Route: 065
  132. DIHYDROCODEINE BITARTRATE [Suspect]
     Active Substance: DIHYDROCODEINE BITARTRATE
     Dosage: 1 DOSAGE FORM, QD
     Route: 065
  133. DIHYDROCODEINE BITARTRATE [Suspect]
     Active Substance: DIHYDROCODEINE BITARTRATE
     Dosage: 1 DOSAGE FORM, DAILY
     Route: 065
  134. DIHYDROCODEINE BITARTRATE [Suspect]
     Active Substance: DIHYDROCODEINE BITARTRATE
     Dosage: 1 DOSAGE FORM, QD
     Route: 065
  135. DIHYDROCODEINE BITARTRATE [Suspect]
     Active Substance: DIHYDROCODEINE BITARTRATE
     Dosage: 1 DOSAGE FORMS DAILY;
     Route: 065
  136. DIHYDROCODEINE BITARTRATE [Suspect]
     Active Substance: DIHYDROCODEINE BITARTRATE
     Dosage: 1 DOSAGE FORM, QD
     Route: 065
  137. DIHYDROCODEINE BITARTRATE [Suspect]
     Active Substance: DIHYDROCODEINE BITARTRATE
     Dosage: 1 DOSAGE FORM, QD
     Route: 065
  138. DIHYDROCODEINE BITARTRATE [Suspect]
     Active Substance: DIHYDROCODEINE BITARTRATE
     Dosage: 1 DOSAGE FORM, QD
     Route: 065
  139. DIHYDROCODEINE BITARTRATE [Suspect]
     Active Substance: DIHYDROCODEINE BITARTRATE
     Dosage: 1 DOSAGE FORM, QD
     Route: 065
  140. DIHYDROCODEINE BITARTRATE [Suspect]
     Active Substance: DIHYDROCODEINE BITARTRATE
     Dosage: 1 DOSAGE FORM, QD
     Route: 065
  141. DIHYDROCODEINE BITARTRATE [Suspect]
     Active Substance: DIHYDROCODEINE BITARTRATE
     Dosage: UNK
     Route: 065
  142. DIHYDROCODEINE BITARTRATE [Suspect]
     Active Substance: DIHYDROCODEINE BITARTRATE
     Indication: Visual impairment
     Dosage: 1 DOSAGE FORM, QD
     Route: 065
  143. DIHYDROCODEINE BITARTRATE [Suspect]
     Active Substance: DIHYDROCODEINE BITARTRATE
     Indication: Visual impairment
     Dosage: 1 DOSAGE FORM, QD
     Route: 065
  144. DIHYDROCODEINE BITARTRATE [Suspect]
     Active Substance: DIHYDROCODEINE BITARTRATE
     Dosage: 1 DOSAGE FORM, QD
     Route: 065
  145. DIHYDROCODEINE BITARTRATE [Suspect]
     Active Substance: DIHYDROCODEINE BITARTRATE
     Dosage: 1 DOSAGE FORM, QD
     Route: 065
  146. DIHYDROCODEINE BITARTRATE [Suspect]
     Active Substance: DIHYDROCODEINE BITARTRATE
     Dosage: 1 DOSAGE FORM, QD
     Route: 065
  147. EPCORITAMAB [Suspect]
     Active Substance: EPCORITAMAB
     Route: 065
  148. EPCORITAMAB [Suspect]
     Active Substance: EPCORITAMAB
     Indication: Follicular lymphoma
     Dosage: 0.8 MILLIGRAM, QD (CUMULATIVE DOSE TO FIRST REACTION: 316.0 MG)
     Route: 058
     Dates: start: 20210315, end: 20210315
  149. EPCORITAMAB [Suspect]
     Active Substance: EPCORITAMAB
     Dosage: .8 MILLIGRAM DAILY;
     Route: 065
  150. EPCORITAMAB [Suspect]
     Active Substance: EPCORITAMAB
     Dosage: .8 MILLIGRAM DAILY; (CUMULATIVE DOSE: 0.96 MG)
     Route: 058
  151. EPCORITAMAB [Suspect]
     Active Substance: EPCORITAMAB
     Dosage: 0.8 MILLIGRAM, DAILY, INTERMEDIATE DOSE, SINGLE
     Route: 058
  152. EPCORITAMAB [Suspect]
     Active Substance: EPCORITAMAB
     Dosage: 0.8 MILLIGRAM, QD
     Route: 058
  153. EPCORITAMAB [Suspect]
     Active Substance: EPCORITAMAB
     Dosage: 0.8 MILLIGRAM, QD
     Route: 058
  154. EPCORITAMAB [Suspect]
     Active Substance: EPCORITAMAB
     Dosage: 0.8 MILLIGRAM, QD
     Route: 065
  155. EPCORITAMAB [Suspect]
     Active Substance: EPCORITAMAB
     Indication: Product used for unknown indication
     Dosage: 16 MILLIGRAM, QWK
     Route: 058
     Dates: start: 20210308, end: 20210308
  156. EPCORITAMAB [Suspect]
     Active Substance: EPCORITAMAB
     Dosage: 24 MILLIGRAM, EVERY 1 WEEK, FULL DOSE, CYCLE 1-3 (CUMULATIVE DOSE TO FIRST REACTION: 1378.2858 MG)
     Route: 058
     Dates: start: 20210322, end: 20210527
  157. EPCORITAMAB [Suspect]
     Active Substance: EPCORITAMAB
     Indication: Follicular lymphoma stage IV
     Dosage: 24 MILLIGRAM, QWK
     Route: 058
     Dates: start: 20210322, end: 20210327
  158. EPCORITAMAB [Suspect]
     Active Substance: EPCORITAMAB
     Dosage: 24 MILLIGRAM, Q2WEEKS, FULL DOSE, CYCLE 4-9
     Route: 058
  159. EPCORITAMAB [Suspect]
     Active Substance: EPCORITAMAB
     Dosage: 48 MILLIGRAM, QWK
     Route: 058
     Dates: start: 20210607
  160. EPCORITAMAB [Suspect]
     Active Substance: EPCORITAMAB
     Dosage: (CUMULATIVE DOSE TO FIRST REACTION: 0.96 MG)
     Route: 065
  161. EPCORITAMAB [Suspect]
     Active Substance: EPCORITAMAB
     Dosage: UNK
     Route: 065
  162. EPCORITAMAB [Suspect]
     Active Substance: EPCORITAMAB
     Dosage: UNK
     Route: 065
  163. EPCORITAMAB [Suspect]
     Active Substance: EPCORITAMAB
     Dosage: UNK (CUMULATIVE DOSE: 0.96 MG)
     Route: 065
  164. EPCORITAMAB [Suspect]
     Active Substance: EPCORITAMAB
     Dosage: UNK (CUMULATIVE DOSE: 0.96 MG)
     Route: 065
  165. EPCORITAMAB [Suspect]
     Active Substance: EPCORITAMAB
     Dosage: UNK (CUMULATIVE DOSE: 0.96 MG)
     Route: 065
  166. EPCORITAMAB [Suspect]
     Active Substance: EPCORITAMAB
     Dosage: UNK (CUMULATIVE DOSE: 0.96 MG)
     Route: 065
  167. PACLITAXEL [Suspect]
     Active Substance: PACLITAXEL
     Dosage: 378 MILLIGRAM
     Route: 065
     Dates: start: 20200427
  168. PACLITAXEL [Suspect]
     Active Substance: PACLITAXEL
     Dosage: 750 MG, Q4W
     Route: 065
  169. PACLITAXEL [Suspect]
     Active Substance: PACLITAXEL
     Dosage: 750 MILLIGRAM, Q4WK
     Route: 065
  170. PACLITAXEL [Suspect]
     Active Substance: PACLITAXEL
     Dosage: UNK
     Route: 065
  171. PACLITAXEL [Suspect]
     Active Substance: PACLITAXEL
     Dosage: UNK
     Route: 065
  172. PACLITAXEL [Suspect]
     Active Substance: PACLITAXEL
     Dosage: UNK
     Route: 065
  173. PACLITAXEL [Suspect]
     Active Substance: PACLITAXEL
     Dosage: UNK
     Route: 065
  174. PACLITAXEL [Suspect]
     Active Substance: PACLITAXEL
     Dosage: 378 MG
     Route: 065
     Dates: start: 20200427
  175. PACLITAXEL [Suspect]
     Active Substance: PACLITAXEL
     Dosage: 750 MG, Q4W
     Route: 065
  176. PACLITAXEL [Suspect]
     Active Substance: PACLITAXEL
     Indication: Transitional cell carcinoma
     Dosage: UNK
     Route: 065
  177. PACLITAXEL [Suspect]
     Active Substance: PACLITAXEL
     Dosage: UNK
     Route: 065
  178. PACLITAXEL [Suspect]
     Active Substance: PACLITAXEL
     Dosage: UNK
     Route: 065
  179. PACLITAXEL [Suspect]
     Active Substance: PACLITAXEL
     Dosage: UNK
     Route: 065
  180. RITUXIMAB [Suspect]
     Active Substance: RITUXIMAB
     Dosage: 750 MG 1Q4W (PHARMACEUTICAL DOSE FORM: 15)
     Route: 042
     Dates: start: 20210308
  181. RITUXIMAB [Suspect]
     Active Substance: RITUXIMAB
     Dosage: 750 MILLIGRAM, Q4WEEKS (CUMULATIVE DOSE TO FIRST REACTION: 13579.241 MG)
     Route: 042
     Dates: start: 20210705
  182. RITUXIMAB [Suspect]
     Active Substance: RITUXIMAB
     Indication: Follicular lymphoma
     Dosage: 300 MILLIGRAM, 1/WEEK; CUMULATIVE DOSE TO FIRST REACTION: 16628.572 MG
     Route: 042
     Dates: start: 20210308
  183. RITUXIMAB [Suspect]
     Active Substance: RITUXIMAB
     Dosage: 300 MILLIGRAM, 1/WEEK; CUMULATIVE DOSE TO FIRST REACTION: 3373.884 MG
     Route: 042
     Dates: start: 20210705
  184. RITUXIMAB [Suspect]
     Active Substance: RITUXIMAB
     Dosage: 300 MILLIGRAM, 1/WEEK; CUMULATIVE DOSE TO FIRST REACTION: 3373.884MG
     Route: 042
     Dates: start: 20210308
  185. RITUXIMAB [Suspect]
     Active Substance: RITUXIMAB
     Dosage: 750 MILLIGRAM, 4XW(750 MG 1Q4W (PHARMACEUTICAL DOSE FORM: 15))
     Route: 042
     Dates: start: 20210308
  186. RITUXIMAB [Suspect]
     Active Substance: RITUXIMAB
     Dosage: 750 MILLIGRAM, 4XW(DATE OF LAST DOSE PRIOR TO EVENT: 9/SEP/2021/ AND 21-SEP, ROA: IV DRIP)
     Route: 042
     Dates: start: 20210308
  187. RITUXIMAB [Suspect]
     Active Substance: RITUXIMAB
     Dosage: DOSEFORM:15,LAST DOSE PRIOR EVENT:9SEP21AND21SEP (CUMULATIVE DOSE TO FIRST REACTION: 166285.72 MG)
     Route: 042
     Dates: start: 20210308
  188. RITUXIMAB [Suspect]
     Active Substance: RITUXIMAB
     Dosage: 750 MILLIGRAM, 4XW (CUMULATIVE DOSE TO FIRST REACTION: 53982.145 MG)
     Route: 042
     Dates: start: 20210308
  189. RITUXIMAB [Suspect]
     Active Substance: RITUXIMAB
     Dosage: 750 MG 1Q4W (PHARMACEUTICAL DOSE FORM: 15)
     Route: 042
     Dates: start: 20210308
  190. RITUXIMAB [Suspect]
     Active Substance: RITUXIMAB
     Dosage: 750 MG 1Q4W (PHARMACEUTICAL DOSE FORM: 15)
     Route: 042
     Dates: start: 20210308
  191. RITUXIMAB [Suspect]
     Active Substance: RITUXIMAB
     Dosage: 750 MG, Q4WEEKS;DATE OF LAST DOSE PRIOR TO EVENT: 9/SEP/2021/DATE OF LAST DOSE PRIOR TO EVENT:21-SEP
     Route: 042
     Dates: start: 20210308
  192. RITUXIMAB [Suspect]
     Active Substance: RITUXIMAB
     Dosage: 750 MILLIGRAM
     Route: 042
     Dates: start: 20210705
  193. RITUXIMAB [Suspect]
     Active Substance: RITUXIMAB
     Dosage: 750 MILLIGRAM, DATE OF LAST DOSE PRIOR TO EVENT: 9/SEP/2021/DATE OF LAST DOSE PRIOR TO EVENT: 21-SEP
     Route: 042
     Dates: start: 20210308
  194. RITUXIMAB [Suspect]
     Active Substance: RITUXIMAB
     Dosage: CUMULATIVE DOSE TO FIRST REACTION: \53982.14 MILLIGRAM
     Route: 065
  195. RITUXIMAB [Suspect]
     Active Substance: RITUXIMAB
     Dosage: 300 MILLIGRAM, 1/WEEK; CUMULATIVE DOSE TO FIRST REACTION: 21726.785 MG
     Route: 042
     Dates: start: 20210705
  196. RITUXIMAB [Suspect]
     Active Substance: RITUXIMAB
     Dosage: 3000 MG, QW (750 MILLIGRAM, 4XW (DATE OF LAST DOSE PRIOR TO EVENT: 9/SEP/2021/ AND 21-SEP, ROA: IV D
     Route: 042
     Dates: start: 20210308
  197. RITUXIMAB [Suspect]
     Active Substance: RITUXIMAB
     Dosage: 3000 MG, QW (750 MILLIGRAM, 4XW (DATE OF LAST DOSE PRIOR TO EVENT: 9/SEP/2021/ AND 21-SEP, ROA: IV D
     Route: 042
     Dates: start: 20210308
  198. RITUXIMAB [Suspect]
     Active Substance: RITUXIMAB
     Dosage: 750 MILLIGRAM, 4XW (CUMULATIVE DOSE TO FIRST REACTION: 3000.0 MG)
     Route: 042
     Dates: start: 20210705
  199. RITUXIMAB [Suspect]
     Active Substance: RITUXIMAB
     Dosage: 750 MILLIGRAM, 4XW (CUMULATIVE DOSE TO FIRST REACTION: 3000.0 MG)
     Route: 042
     Dates: start: 20210705
  200. RITUXIMAB [Suspect]
     Active Substance: RITUXIMAB
     Indication: Follicular lymphoma stage IV
     Dosage: 750 MILLIGRAM, 4XW(DATE OF LAST DOSE PRIOR TO EVENT: 9/SEP/2021/ AND 21-SEP, ROA: IV DRIP)
     Route: 042
     Dates: start: 20210308
  201. RITUXIMAB [Suspect]
     Active Substance: RITUXIMAB
     Dosage: 750 MILLIGRAM, 4XW(DATE OF LAST DOSE PRIOR TO EVENT: 9/SEP/2021/ AND 21-SEP, ROA: IV DRIP)(CUMULATIV
     Route: 042
     Dates: start: 20210308
  202. RITUXIMAB [Suspect]
     Active Substance: RITUXIMAB
     Dosage: 750 MILLIGRAM, 4XW (CUMULATIVE DOSE TO FIRST REACTION: 53982.145 MG)
     Route: 042
     Dates: start: 20210308
  203. RITUXIMAB [Suspect]
     Active Substance: RITUXIMAB
     Dosage: 750 MILLIGRAM
     Route: 042
     Dates: start: 20210705
  204. RITUXIMAB [Suspect]
     Active Substance: RITUXIMAB
     Dosage: 750 MG 1Q4W (PHARMACEUTICAL DOSE FORM: 15)
     Route: 042
     Dates: start: 20210308
  205. RITUXIMAB [Suspect]
     Active Substance: RITUXIMAB
     Dosage: 750 MILLIGRAM
     Route: 042
     Dates: start: 20210705
  206. RITUXIMAB [Suspect]
     Active Substance: RITUXIMAB
     Dosage: 750 MILLIGRAM
     Route: 065
     Dates: start: 20210705
  207. RITUXIMAB [Suspect]
     Active Substance: RITUXIMAB
     Dosage: 750 MILLIGRAM, DATE OF LAST DOSE PRIOR TO EVENT: 9/SEP/2021/DATE OF LAST DOSE PRIOR TO EVENT: 21-SEP
     Route: 042
     Dates: start: 20210308
  208. RITUXIMAB [Suspect]
     Active Substance: RITUXIMAB
     Dosage: 750 MILLIGRAM, DATE OF LAST DOSE PRIOR TO EVENT: 9/SEP/2021/DATE OF LAST DOSE PRIOR TO EVENT: 21-SEP
     Route: 042
     Dates: start: 20210308
  209. RITUXIMAB [Suspect]
     Active Substance: RITUXIMAB
     Dosage: UNK
     Route: 065
  210. RITUXIMAB [Suspect]
     Active Substance: RITUXIMAB
     Dosage: UNK
     Route: 065
  211. RITUXIMAB [Suspect]
     Active Substance: RITUXIMAB
     Dosage: UNK
     Route: 065
  212. ACYCLOVIR [Concomitant]
     Active Substance: ACYCLOVIR
     Indication: Product used for unknown indication
     Dosage: UNK
     Route: 065
  213. ACYCLOVIR [Concomitant]
     Active Substance: ACYCLOVIR
     Dosage: 0.33 UNK, QD
     Route: 065
  214. ACYCLOVIR [Concomitant]
     Active Substance: ACYCLOVIR
     Dosage: UNK, TID (0.33 DAY)
     Route: 065
     Dates: start: 20200402, end: 20200404
  215. ACYCLOVIR [Concomitant]
     Active Substance: ACYCLOVIR
     Dosage: 0.33 UNK, QD; ;
     Route: 065
  216. ACYCLOVIR [Concomitant]
     Active Substance: ACYCLOVIR
     Dosage: UNK (0.33/DAY)
     Route: 065
     Dates: start: 20200402, end: 20200404
  217. ACYCLOVIR [Concomitant]
     Active Substance: ACYCLOVIR
     Dosage: 0.33 UNK, QD
     Route: 065
  218. ACYCLOVIR [Concomitant]
     Active Substance: ACYCLOVIR
     Dosage: UNK
     Route: 065
  219. ACYCLOVIR [Concomitant]
     Active Substance: ACYCLOVIR
     Dosage: UNK
     Route: 065
  220. ACYCLOVIR [Concomitant]
     Active Substance: ACYCLOVIR
     Dosage: UNK; ;
     Route: 065
  221. ACYCLOVIR [Concomitant]
     Active Substance: ACYCLOVIR
     Indication: Product used for unknown indication
     Dosage: UNK, TID DOSE: 3, 1 DAY; (0.33/DAY)
     Route: 065
     Dates: start: 20200402, end: 20200404
  222. ACYCLOVIR [Concomitant]
     Active Substance: ACYCLOVIR
     Dosage: UNK 0.33/DAY
     Route: 065
     Dates: start: 20200402, end: 20200404
  223. AMOXICILLIN TRIHYDRATE [Concomitant]
     Active Substance: AMOXICILLIN
     Dosage: UNK; ;
     Route: 065
  224. AMOXICILLIN TRIHYDRATE [Concomitant]
     Active Substance: AMOXICILLIN
     Dosage: UNK
     Route: 065
  225. AMOXICILLIN TRIHYDRATE [Concomitant]
     Active Substance: AMOXICILLIN
     Dosage: UNK
     Route: 065
  226. AMOXICILLIN TRIHYDRATE [Concomitant]
     Active Substance: AMOXICILLIN
     Route: 065
  227. AMOXICILLIN TRIHYDRATE [Concomitant]
     Active Substance: AMOXICILLIN
     Indication: Product used for unknown indication
     Dosage: UNK
     Route: 065
  228. ANTACID [Concomitant]
     Active Substance: ALUMINUM HYDROXIDE\CALCIUM CARBONATE\DIMETHICONE\MAGNESIUM HYDROXIDE
     Indication: Mucosal inflammation
     Dosage: UNK UNK, BID
     Route: 065
     Dates: start: 20200221
  229. ANTACID [Concomitant]
     Active Substance: ALUMINUM HYDROXIDE\CALCIUM CARBONATE\DIMETHICONE\MAGNESIUM HYDROXIDE
     Indication: Mucosal inflammation
  230. BIOCLAVID [Concomitant]
     Active Substance: AMOXICILLIN\CLAVULANIC ACID
     Indication: Product used for unknown indication
     Dosage: UNK
     Route: 065
  231. BIOCLAVID [Concomitant]
     Active Substance: AMOXICILLIN\CLAVULANIC ACID
     Dosage: UNK
     Route: 065
  232. HYDROCORTISONE\MICONAZOLE NITRATE [Concomitant]
     Active Substance: HYDROCORTISONE\MICONAZOLE NITRATE
     Indication: Product used for unknown indication
     Dosage: UNK
     Route: 065
     Dates: start: 20210715
  233. BUTYLSCOPOLAMINE BROMIDE [Concomitant]
     Active Substance: BUTYLSCOPOLAMINE BROMIDE
     Indication: Product used for unknown indication
     Dosage: .5 ABSENT 0.5 ABSENT
     Route: 065
     Dates: start: 20200214, end: 20200222
  234. BUTYLSCOPOLAMINE BROMIDE [Concomitant]
     Active Substance: BUTYLSCOPOLAMINE BROMIDE
     Indication: Pain
     Dosage: UNK
     Route: 065
  235. BUTYLSCOPOLAMINE BROMIDE [Concomitant]
     Active Substance: BUTYLSCOPOLAMINE BROMIDE
     Dosage: UNK
     Route: 065
     Dates: start: 20200215, end: 20200222
  236. CALCIUM [Concomitant]
     Active Substance: CALCIUM
     Indication: Product used for unknown indication
     Dosage: UNK
     Route: 065
     Dates: start: 20210504
  237. CALCIUM [Concomitant]
     Active Substance: CALCIUM
     Dosage: UNK
     Route: 065
  238. CALCIUM [Concomitant]
     Active Substance: CALCIUM
     Dosage: UNK
     Route: 065
  239. CEFUROXIME [Concomitant]
     Active Substance: CEFUROXIME
     Dosage: UNK
     Route: 065
     Dates: start: 20210509
  240. CEFUROXIME [Concomitant]
     Active Substance: CEFUROXIME
     Dosage: UNK
     Route: 065
  241. CEFUROXIME [Concomitant]
     Active Substance: CEFUROXIME
     Dosage: UNK
     Route: 065
  242. CEFUROXIME [Concomitant]
     Active Substance: CEFUROXIME
     Dosage: UNK
     Route: 065
  243. CEFUROXIME [Concomitant]
     Active Substance: CEFUROXIME
     Dosage: UNK
     Route: 065
  244. CEFUROXIME [Concomitant]
     Active Substance: CEFUROXIME
     Indication: Product used for unknown indication
     Dosage: UNK
     Route: 065
  245. CHLORHEXIDINE [Concomitant]
     Active Substance: CHLORHEXIDINE\CHLORHEXIDINE GLUCONATE
     Dosage: UNK
     Route: 065
  246. CHLORHEXIDINE [Concomitant]
     Active Substance: CHLORHEXIDINE\CHLORHEXIDINE GLUCONATE
     Dosage: UNK
     Route: 065
  247. CHLORHEXIDINE [Concomitant]
     Active Substance: CHLORHEXIDINE\CHLORHEXIDINE GLUCONATE
     Dosage: UNK
     Route: 065
  248. CHLORHEXIDINE [Concomitant]
     Active Substance: CHLORHEXIDINE\CHLORHEXIDINE GLUCONATE
     Dosage: UNK
     Route: 065
  249. CHLORHEXIDINE [Concomitant]
     Active Substance: CHLORHEXIDINE\CHLORHEXIDINE GLUCONATE
     Dosage: UNK
     Route: 065
  250. CHLORHEXIDINE [Concomitant]
     Active Substance: CHLORHEXIDINE\CHLORHEXIDINE GLUCONATE
     Dosage: UNK
     Route: 065
  251. CHLORHEXIDINE [Concomitant]
     Active Substance: CHLORHEXIDINE\CHLORHEXIDINE GLUCONATE
     Route: 065
  252. CHLORHEXIDINE [Concomitant]
     Active Substance: CHLORHEXIDINE\CHLORHEXIDINE GLUCONATE
     Indication: Hiatus hernia
     Dosage: UNK
     Route: 065
  253. CHLORHEXIDINE [Concomitant]
     Active Substance: CHLORHEXIDINE\CHLORHEXIDINE GLUCONATE
     Dosage: UNK
     Route: 065
  254. CHLORHEXIDINE [Concomitant]
     Active Substance: CHLORHEXIDINE\CHLORHEXIDINE GLUCONATE
     Dosage: UNK
     Route: 065
  255. CHLORHEXIDINE [Concomitant]
     Active Substance: CHLORHEXIDINE\CHLORHEXIDINE GLUCONATE
     Dosage: UNK
     Route: 065
  256. CHLORHEXIDINE [Concomitant]
     Active Substance: CHLORHEXIDINE\CHLORHEXIDINE GLUCONATE
     Dosage: UNK
     Route: 065
  257. CHLORHEXIDINE [Concomitant]
     Active Substance: CHLORHEXIDINE\CHLORHEXIDINE GLUCONATE
     Dosage: UNK
     Route: 065
  258. CHLORHEXIDINE [Concomitant]
     Active Substance: CHLORHEXIDINE\CHLORHEXIDINE GLUCONATE
     Dosage: UNK
     Route: 065
  259. CHLORHEXIDINE [Concomitant]
     Active Substance: CHLORHEXIDINE\CHLORHEXIDINE GLUCONATE
     Dosage: UNK
     Route: 065
  260. CIPROFLOXACIN [Concomitant]
     Active Substance: CIPROFLOXACIN
     Indication: Product used for unknown indication
     Route: 065
  261. CLAVULANATE POTASSIUM [Concomitant]
     Active Substance: CLAVULANATE POTASSIUM
     Dosage: UNK; ;
     Route: 065
  262. CLAVULANATE POTASSIUM [Concomitant]
     Active Substance: CLAVULANATE POTASSIUM
     Dosage: UNK
     Route: 065
  263. CLAVULANATE POTASSIUM [Concomitant]
     Active Substance: CLAVULANATE POTASSIUM
     Dosage: UNK
     Route: 065
  264. CLAVULANATE POTASSIUM [Concomitant]
     Active Substance: CLAVULANATE POTASSIUM
     Dosage: UNK
     Route: 065
  265. CLAVULANATE POTASSIUM [Concomitant]
     Active Substance: CLAVULANATE POTASSIUM
     Dosage: UNK
     Route: 065
  266. CLAVULANATE POTASSIUM [Concomitant]
     Active Substance: CLAVULANATE POTASSIUM
     Dosage: UNK
     Route: 065
  267. CLAVULANATE POTASSIUM [Concomitant]
     Active Substance: CLAVULANATE POTASSIUM
     Indication: Product used for unknown indication
     Dosage: UNK
     Route: 065
  268. CLAVULANATE POTASSIUM [Concomitant]
     Active Substance: CLAVULANATE POTASSIUM
     Dosage: UNK
     Route: 065
  269. CLAVULANIC ACID [Concomitant]
     Active Substance: CLAVULANIC ACID
     Indication: Product used for unknown indication
     Dosage: UNK
     Route: 065
     Dates: start: 20210509
  270. CLAVULANIC ACID [Concomitant]
     Active Substance: CLAVULANIC ACID
     Indication: Prophylaxis
     Dosage: UNK
     Route: 065
     Dates: start: 20210714, end: 20210715
  271. CLEMASTINE FUMARATE [Concomitant]
     Active Substance: CLEMASTINE FUMARATE
     Indication: Product used for unknown indication
     Dosage: UNK
     Route: 065
     Dates: start: 20210509
  272. CLEMASTINE FUMARATE [Concomitant]
     Active Substance: CLEMASTINE FUMARATE
     Dosage: UNK
     Route: 065
  273. CLEMASTINE FUMARATE [Concomitant]
     Active Substance: CLEMASTINE FUMARATE
     Dosage: UNK
     Route: 065
  274. CLEMASTINE FUMARATE [Concomitant]
     Active Substance: CLEMASTINE FUMARATE
     Dosage: UNK
     Route: 065
     Dates: start: 20210509
  275. CLEMASTINE FUMARATE [Concomitant]
     Active Substance: CLEMASTINE FUMARATE
     Dosage: UNK
     Route: 065
  276. CLEMASTINE FUMARATE [Concomitant]
     Active Substance: CLEMASTINE FUMARATE
     Dosage: UNK
     Route: 065
  277. AMOXICILLIN\CLAVULANATE POTASSIUM [Concomitant]
     Active Substance: AMOXICILLIN\CLAVULANATE POTASSIUM
     Indication: Product used for unknown indication
     Dosage: UNK
     Route: 065
  278. CHOLECALCIFEROL [Concomitant]
     Active Substance: CHOLECALCIFEROL
     Indication: Product used for unknown indication
     Dosage: UNK
     Route: 065
     Dates: start: 20210504
  279. CHOLECALCIFEROL [Concomitant]
     Active Substance: CHOLECALCIFEROL
     Dosage: UNK
     Route: 065
  280. CHOLECALCIFEROL [Concomitant]
     Active Substance: CHOLECALCIFEROL
     Dosage: UNK
     Route: 065
     Dates: start: 20210504
  281. CHOLECALCIFEROL [Concomitant]
     Active Substance: CHOLECALCIFEROL
     Dosage: UNK
     Route: 065
  282. CHOLECALCIFEROL [Concomitant]
     Active Substance: CHOLECALCIFEROL
     Dosage: UNK
     Route: 065
  283. CHOLECALCIFEROL [Concomitant]
     Active Substance: CHOLECALCIFEROL
     Dosage: UNK
     Route: 065
  284. DAPSONE [Concomitant]
     Active Substance: DAPSONE
     Dosage: UNK, QD
     Route: 065
     Dates: start: 20200625
  285. DAPSONE [Concomitant]
     Active Substance: DAPSONE
     Dosage: UNK
     Route: 065
  286. DAPSONE [Concomitant]
     Active Substance: DAPSONE
     Dosage: UNK
     Route: 065
  287. DAPSONE [Concomitant]
     Active Substance: DAPSONE
     Dosage: DOSE: 1; UNK UNK, QD
     Route: 065
     Dates: start: 20210625
  288. DAPSONE [Concomitant]
     Active Substance: DAPSONE
     Dosage: UNK, QD
     Route: 065
     Dates: start: 20200625
  289. DAPSONE [Concomitant]
     Active Substance: DAPSONE
     Dosage: UNK, QD
     Route: 065
     Dates: start: 20200625
  290. DAPSONE [Concomitant]
     Active Substance: DAPSONE
     Indication: Headache
     Dosage: UNK
     Route: 065
  291. DAPSONE [Concomitant]
     Active Substance: DAPSONE
     Route: 065
     Dates: start: 20210607, end: 20220207
  292. DEXAMETHASONE [Concomitant]
     Active Substance: DEXAMETHASONE
     Indication: Headache
     Dosage: UNK, QD (DOSE: 1, EVERY 1 DAY)
     Route: 065
     Dates: start: 20200625
  293. DEXAMETHASONE [Concomitant]
     Active Substance: DEXAMETHASONE
     Dosage: UNK UNK, QD
     Route: 065
     Dates: start: 20200625
  294. FLUTICASONE FUROATE [Concomitant]
     Active Substance: FLUTICASONE FUROATE
     Indication: Product used for unknown indication
     Dosage: UNK
     Route: 065
     Dates: start: 20210708
  295. FLUTICASONE FUROATE [Concomitant]
     Active Substance: FLUTICASONE FUROATE
     Dosage: UNK
     Route: 065
  296. FLUTICASONE FUROATE [Concomitant]
     Active Substance: FLUTICASONE FUROATE
     Dosage: UNK
     Route: 065
  297. FLUTICASONE FUROATE [Concomitant]
     Active Substance: FLUTICASONE FUROATE
     Dosage: UNK
     Route: 065
     Dates: start: 20210708
  298. FLUTICASONE FUROATE [Concomitant]
     Active Substance: FLUTICASONE FUROATE
     Dosage: UNK
     Route: 065
     Dates: start: 20210708
  299. FLUTICASONE FUROATE [Concomitant]
     Active Substance: FLUTICASONE FUROATE
     Dosage: UNK
     Route: 065
     Dates: start: 20210708
  300. FLUTICASONE FUROATE [Concomitant]
     Active Substance: FLUTICASONE FUROATE
     Dosage: UNK
     Route: 065
     Dates: start: 20210708
  301. FLUTICASONE FUROATE [Concomitant]
     Active Substance: FLUTICASONE FUROATE
     Dosage: UNK
     Route: 065
     Dates: start: 20210708
  302. FLUTICASONE FUROATE [Concomitant]
     Active Substance: FLUTICASONE FUROATE
     Dosage: UNK
     Route: 065
  303. FLUTICASONE FUROATE [Concomitant]
     Active Substance: FLUTICASONE FUROATE
     Dosage: UNK
     Route: 065
  304. FLUTICASONE FUROATE [Concomitant]
     Active Substance: FLUTICASONE FUROATE
     Dosage: UNK
     Route: 065
  305. FUROSEMIDE [Concomitant]
     Active Substance: FUROSEMIDE
     Indication: Product used for unknown indication
     Dosage: UNK; ;
     Route: 065
     Dates: start: 20210308
  306. Gelclair [Concomitant]
     Indication: Product used for unknown indication
     Dosage: UNK
     Route: 065
     Dates: start: 20200407, end: 20200409
  307. Gelclair [Concomitant]
     Dosage: UNK
     Route: 065
  308. Gelclair [Concomitant]
     Dosage: UNK
     Route: 065
     Dates: start: 20200407, end: 20200409
  309. Gelclair [Concomitant]
     Dosage: UNK
     Route: 065
     Dates: start: 20200407, end: 20200409
  310. HYDROCORTISONE [Concomitant]
     Active Substance: HYDROCORTISONE
     Indication: Product used for unknown indication
     Dosage: UNK
     Route: 065
     Dates: start: 20210715
  311. HYDROCORTISONE [Concomitant]
     Active Substance: HYDROCORTISONE
     Dosage: UNK
     Route: 065
  312. HYDROCORTISONE [Concomitant]
     Active Substance: HYDROCORTISONE
     Route: 065
     Dates: start: 20210721, end: 20210721
  313. BUTYLSCOPOLAMINE BROMIDE [Concomitant]
     Active Substance: BUTYLSCOPOLAMINE BROMIDE
     Dosage: UNK; ;
     Route: 065
  314. BUTYLSCOPOLAMINE BROMIDE [Concomitant]
     Active Substance: BUTYLSCOPOLAMINE BROMIDE
     Dosage: UNK; ;
     Route: 065
  315. BUTYLSCOPOLAMINE BROMIDE [Concomitant]
     Active Substance: BUTYLSCOPOLAMINE BROMIDE
     Dosage: UNK
     Route: 065
  316. BUTYLSCOPOLAMINE BROMIDE [Concomitant]
     Active Substance: BUTYLSCOPOLAMINE BROMIDE
     Dosage: UNK
     Route: 065
  317. BUTYLSCOPOLAMINE BROMIDE [Concomitant]
     Active Substance: BUTYLSCOPOLAMINE BROMIDE
     Dosage: UNK
     Route: 065
  318. BUTYLSCOPOLAMINE BROMIDE [Concomitant]
     Active Substance: BUTYLSCOPOLAMINE BROMIDE
     Route: 065
  319. BUTYLSCOPOLAMINE BROMIDE [Concomitant]
     Active Substance: BUTYLSCOPOLAMINE BROMIDE
     Indication: Product used for unknown indication
     Dosage: UNK
     Route: 065
  320. BUTYLSCOPOLAMINE BROMIDE [Concomitant]
     Active Substance: BUTYLSCOPOLAMINE BROMIDE
     Dosage: UNK
     Route: 065
  321. BUTYLSCOPOLAMINE BROMIDE [Concomitant]
     Active Substance: BUTYLSCOPOLAMINE BROMIDE
     Dosage: UNK
     Route: 065
  322. BUTYLSCOPOLAMINE BROMIDE [Concomitant]
     Active Substance: BUTYLSCOPOLAMINE BROMIDE
     Dosage: UNK
     Route: 065
  323. IMODIUM [Concomitant]
     Active Substance: LOPERAMIDE HYDROCHLORIDE
     Indication: Product used for unknown indication
     Dosage: UNK
     Route: 065
     Dates: start: 20210518
  324. IMODIUM [Concomitant]
     Active Substance: LOPERAMIDE HYDROCHLORIDE
     Dosage: UNK
     Route: 065
  325. IMODIUM [Concomitant]
     Active Substance: LOPERAMIDE HYDROCHLORIDE
     Dosage: UNK
     Route: 065
  326. KALIUMKLORID [Concomitant]
     Indication: Product used for unknown indication
     Dosage: UNK
     Route: 065
     Dates: start: 20210308
  327. LANSOPRAZOLE [Concomitant]
     Active Substance: LANSOPRAZOLE
     Indication: Product used for unknown indication
     Dosage: UNK
     Route: 065
  328. LANSOPRAZOLE [Concomitant]
     Active Substance: LANSOPRAZOLE
     Dosage: UNK
     Route: 065
  329. LANSOPRAZOLE [Concomitant]
     Active Substance: LANSOPRAZOLE
     Dosage: UNK
     Route: 065
  330. LANSOPRAZOLE [Concomitant]
     Active Substance: LANSOPRAZOLE
     Dosage: UNK
     Route: 065
  331. LANSOPRAZOLE [Concomitant]
     Active Substance: LANSOPRAZOLE
     Dosage: UNK
     Route: 065
  332. LANSOPRAZOLE [Concomitant]
     Active Substance: LANSOPRAZOLE
     Dosage: UNK
     Route: 065
  333. LANSOPRAZOLE [Concomitant]
     Active Substance: LANSOPRAZOLE
     Dosage: UNK
     Route: 065
  334. LANSOPRAZOLE [Concomitant]
     Active Substance: LANSOPRAZOLE
     Route: 065
  335. LANSOPRAZOLE [Concomitant]
     Active Substance: LANSOPRAZOLE
     Indication: Product used for unknown indication
     Dosage: UNK
     Route: 065
  336. LOPERAMIDE [Concomitant]
     Active Substance: LOPERAMIDE
     Indication: Pain
     Dosage: UNK
     Route: 065
     Dates: start: 20210518
  337. LOPERAMIDE [Concomitant]
     Active Substance: LOPERAMIDE
     Indication: Product used for unknown indication
     Dosage: UNK
     Route: 065
  338. LOPERAMIDE [Concomitant]
     Active Substance: LOPERAMIDE
     Dosage: UNK
     Route: 065
     Dates: start: 20200214
  339. LOPERAMIDE [Concomitant]
     Active Substance: LOPERAMIDE
     Route: 065
  340. POLYETHYLENE GLYCOL 3350 [Concomitant]
     Active Substance: POLYETHYLENE GLYCOL 3350
     Indication: Product used for unknown indication
     Dosage: UNK
     Route: 065
     Dates: start: 20210712
  341. POLYETHYLENE GLYCOL 3350 [Concomitant]
     Active Substance: POLYETHYLENE GLYCOL 3350
     Dosage: UNK
     Route: 065
     Dates: start: 20210712
  342. POLYETHYLENE GLYCOL 3350 [Concomitant]
     Active Substance: POLYETHYLENE GLYCOL 3350
     Dosage: UNK
     Route: 065
     Dates: start: 20210712
  343. METHYLPREDNISOLONE [Concomitant]
     Active Substance: METHYLPREDNISOLONE
     Indication: Prophylaxis
     Dosage: 80 MG
     Route: 042
     Dates: start: 20210308, end: 20210308
  344. METHYLPREDNISOLONE [Concomitant]
     Active Substance: METHYLPREDNISOLONE
     Dosage: UNK
     Route: 065
     Dates: start: 20210406, end: 20210406
  345. METHYLPREDNISOLONE [Concomitant]
     Active Substance: METHYLPREDNISOLONE
     Dosage: UNK
     Route: 065
     Dates: start: 20210308, end: 20210406
  346. METHYLPREDNISOLONE [Concomitant]
     Active Substance: METHYLPREDNISOLONE
     Dosage: 80 MG
     Route: 065
     Dates: start: 20210406, end: 20210406
  347. METHYLPREDNISOLONE SODIUM SUCCINATE [Concomitant]
     Active Substance: METHYLPREDNISOLONE SODIUM SUCCINATE
     Indication: Product used for unknown indication
     Dosage: UNK
     Route: 065
     Dates: start: 20210308, end: 20210406
  348. METOCLOPRAMIDE [Concomitant]
     Active Substance: METOCLOPRAMIDE
     Indication: Pain
     Dosage: DOSE: 3, 1 DAY; [0.33/DAY]
     Route: 065
     Dates: start: 20200214, end: 20200222
  349. METOCLOPRAMIDE [Concomitant]
     Active Substance: METOCLOPRAMIDE
     Dosage: UNK
     Route: 065
     Dates: start: 20210509, end: 20210623
  350. METOCLOPRAMIDE [Concomitant]
     Active Substance: METOCLOPRAMIDE
     Dosage: UNK
     Route: 065
  351. METOCLOPRAMIDE [Concomitant]
     Active Substance: METOCLOPRAMIDE
     Dosage: UNK
     Route: 065
  352. METOCLOPRAMIDE [Concomitant]
     Active Substance: METOCLOPRAMIDE
     Indication: Product used for unknown indication
     Dosage: UNK, TID
     Route: 065
     Dates: start: 20200214, end: 20200220
  353. METOCLOPRAMIDE [Concomitant]
     Active Substance: METOCLOPRAMIDE
     Dosage: UNK, TID
     Route: 065
     Dates: start: 20200214, end: 20200220
  354. METOCLOPRAMIDE [Concomitant]
     Active Substance: METOCLOPRAMIDE
     Indication: Product used for unknown indication
     Dosage: UNK
     Route: 065
     Dates: start: 20210509
  355. METOCLOPRAMIDE [Concomitant]
     Active Substance: METOCLOPRAMIDE
     Dosage: UNK
     Route: 065
  356. METOCLOPRAMIDE HYDROCHLORIDE;ONDANSETRON HYDROCHLORIDE DIHYDRATE [Concomitant]
     Indication: Product used for unknown indication
     Dosage: UNK
     Route: 065
  357. MICONAZOLE [Concomitant]
     Active Substance: MICONAZOLE
     Indication: Product used for unknown indication
     Dosage: UNK
     Route: 065
     Dates: start: 20210715, end: 20211004
  358. MICONAZOLE NITRATE [Concomitant]
     Active Substance: MICONAZOLE NITRATE
     Indication: Product used for unknown indication
     Dosage: UNK
     Route: 065
     Dates: start: 20210715
  359. MICONAZOLE NITRATE [Concomitant]
     Active Substance: MICONAZOLE NITRATE
     Dosage: UNK
     Route: 065
  360. MICONAZOLE NITRATE [Concomitant]
     Active Substance: MICONAZOLE NITRATE
     Dosage: UNK
     Route: 065
     Dates: start: 20210715
  361. MICONAZOLE NITRATE [Concomitant]
     Active Substance: MICONAZOLE NITRATE
     Dosage: UNK
     Route: 065
     Dates: start: 20210715
  362. MICONAZOLE NITRATE [Concomitant]
     Active Substance: MICONAZOLE NITRATE
     Dosage: UNK
     Route: 065
     Dates: start: 20210715
  363. MICONAZOLE NITRATE [Concomitant]
     Active Substance: MICONAZOLE NITRATE
     Dosage: UNK
     Route: 065
     Dates: start: 20210715
  364. MICONAZOLE NITRATE [Concomitant]
     Active Substance: MICONAZOLE NITRATE
     Dosage: UNK
     Route: 065
     Dates: start: 20210715
  365. MICONAZOLE NITRATE [Concomitant]
     Active Substance: MICONAZOLE NITRATE
     Dosage: UNK
     Route: 065
     Dates: start: 20210715
  366. MICONAZOLE NITRATE [Concomitant]
     Active Substance: MICONAZOLE NITRATE
     Dosage: UNK
     Route: 065
  367. MICONAZOLE NITRATE [Concomitant]
     Active Substance: MICONAZOLE NITRATE
     Dosage: UNK
     Route: 065
  368. MICONAZOLE NITRATE [Concomitant]
     Active Substance: MICONAZOLE NITRATE
     Dosage: UNK
     Route: 065
  369. MORPHINE SULFATE [Concomitant]
     Active Substance: MORPHINE SULFATE
     Indication: Product used for unknown indication
     Dosage: UNK
     Route: 065
  370. MORPHINE SULFATE [Concomitant]
     Active Substance: MORPHINE SULFATE
     Dosage: UNK
     Route: 065
  371. MORPHINE SULFATE [Concomitant]
     Active Substance: MORPHINE SULFATE
     Indication: Product used for unknown indication
     Dosage: UNK
     Route: 065
  372. NITROFURANTOIN [Concomitant]
     Active Substance: NITROFURANTOIN
     Indication: Hiatus hernia
     Dosage: UNK UNK, QD (DOSE: 1, EVERY 1 DAY)
     Route: 065
     Dates: start: 20200204
  373. NITROFURANTOIN [Concomitant]
     Active Substance: NITROFURANTOIN
     Dosage: UNK UNK, QD
     Route: 065
     Dates: start: 20200204
  374. NITROFURANTOIN [Concomitant]
     Active Substance: NITROFURANTOIN
     Dosage: UNK UNK, QD (DOSE: 1, EVERY 1 DAY)
     Route: 065
     Dates: start: 20200204
  375. NITROFURANTOIN [Concomitant]
     Active Substance: NITROFURANTOIN
     Dosage: UNK, QD
     Route: 065
     Dates: start: 20200204
  376. OMEPRAZOLE [Concomitant]
     Active Substance: OMEPRAZOLE
     Dosage: UNK
     Route: 065
  377. OMEPRAZOLE [Concomitant]
     Active Substance: OMEPRAZOLE
     Dosage: UNK
     Route: 065
  378. OMEPRAZOLE [Concomitant]
     Active Substance: OMEPRAZOLE
     Dosage: UNK
     Route: 065
  379. OMEPRAZOLE [Concomitant]
     Active Substance: OMEPRAZOLE
     Indication: Product used for unknown indication
     Dosage: UNK
     Route: 065
  380. OMEPRAZOLE [Concomitant]
     Active Substance: OMEPRAZOLE
     Indication: Product used for unknown indication
     Dosage: UNK
     Route: 065
  381. OMEPRAZOLE [Concomitant]
     Active Substance: OMEPRAZOLE
     Dosage: UNK
     Route: 065
  382. ONDANSETRON [Concomitant]
     Active Substance: ONDANSETRON
     Indication: Product used for unknown indication
     Dosage: 8 MILLIGRAM (INITIATED-10-FEB-2022)
     Route: 065
     Dates: start: 20220210, end: 20220210
  383. ONDANSETRON [Concomitant]
     Active Substance: ONDANSETRON
     Indication: Product used for unknown indication
     Dosage: UNK
     Route: 065
     Dates: start: 20210509
  384. ONDANSETRON [Concomitant]
     Active Substance: ONDANSETRON
     Dosage: UNK
     Route: 065
  385. ONDANSETRON [Concomitant]
     Active Substance: ONDANSETRON
     Dosage: UNK
     Route: 065
     Dates: start: 20210509
  386. ONDANSETRON [Concomitant]
     Active Substance: ONDANSETRON
     Dosage: UNK
     Route: 065
  387. ONDANSETRON [Concomitant]
     Active Substance: ONDANSETRON
     Dosage: UNK
     Route: 065
  388. MORPHINE SULFATE [Concomitant]
     Active Substance: MORPHINE SULFATE
     Dosage: UNK
     Route: 065
  389. MORPHINE SULFATE [Concomitant]
     Active Substance: MORPHINE SULFATE
     Dosage: UNK
     Route: 065
  390. MORPHINE SULFATE [Concomitant]
     Active Substance: MORPHINE SULFATE
     Dosage: UNK
     Route: 065
  391. MORPHINE SULFATE [Concomitant]
     Active Substance: MORPHINE SULFATE
     Dosage: UNK
     Route: 065
  392. MORPHINE SULFATE [Concomitant]
     Active Substance: MORPHINE SULFATE
     Dosage: UNK
     Route: 065
  393. MORPHINE SULFATE [Concomitant]
     Active Substance: MORPHINE SULFATE
     Dosage: UNK
     Route: 065
  394. MORPHINE SULFATE [Concomitant]
     Active Substance: MORPHINE SULFATE
     Indication: Pain
     Dosage: UNK
     Route: 065
  395. OXETACAINE [Concomitant]
     Active Substance: OXETHAZAINE
     Indication: Mucosal inflammation
     Dosage: UNK
     Route: 065
     Dates: start: 20200221
  396. PANTOPRAZOLE [Concomitant]
     Active Substance: PANTOPRAZOLE
     Indication: Product used for unknown indication
     Route: 065
  397. ACETAMINOPHEN [Concomitant]
     Active Substance: ACETAMINOPHEN
     Dosage: DOSE: 1, 1 AS NECESSARY
     Route: 065
     Dates: start: 20210308
  398. ACETAMINOPHEN [Concomitant]
     Active Substance: ACETAMINOPHEN
     Dosage: UNK
     Route: 065
     Dates: start: 20210708
  399. ACETAMINOPHEN [Concomitant]
     Active Substance: ACETAMINOPHEN
     Dosage: UNK
     Route: 065
  400. ACETAMINOPHEN [Concomitant]
     Active Substance: ACETAMINOPHEN
     Dosage: UNK UNK, AS NECESSARY
     Route: 065
  401. ACETAMINOPHEN [Concomitant]
     Active Substance: ACETAMINOPHEN
     Dosage: UNK UNK, AS NECESSARY
     Route: 065
  402. ACETAMINOPHEN [Concomitant]
     Active Substance: ACETAMINOPHEN
     Dosage: UNK UNK, AS NECESSARY
     Route: 065
  403. ACETAMINOPHEN [Concomitant]
     Active Substance: ACETAMINOPHEN
     Dosage: UNK UNK, AS NECESSARY
     Route: 065
  404. ACETAMINOPHEN [Concomitant]
     Active Substance: ACETAMINOPHEN
     Dosage: UNK UNK, AS NECESSARY
     Route: 065
  405. ACETAMINOPHEN [Concomitant]
     Active Substance: ACETAMINOPHEN
     Dosage: UNK, PRN
     Route: 065
  406. ACETAMINOPHEN [Concomitant]
     Active Substance: ACETAMINOPHEN
     Dosage: AS NECESSARY
     Route: 065
  407. ACETAMINOPHEN [Concomitant]
     Active Substance: ACETAMINOPHEN
     Indication: Pain
     Dosage: UNK
     Route: 065
  408. ACETAMINOPHEN [Concomitant]
     Active Substance: ACETAMINOPHEN
     Dosage: UNK
     Route: 065
  409. ACETAMINOPHEN [Concomitant]
     Active Substance: ACETAMINOPHEN
     Dosage: UNK
     Route: 065
  410. ACETAMINOPHEN [Concomitant]
     Active Substance: ACETAMINOPHEN
     Dosage: UNK
     Route: 065
  411. ACETAMINOPHEN [Concomitant]
     Active Substance: ACETAMINOPHEN
     Dosage: UNK
     Route: 065
  412. ACETAMINOPHEN [Concomitant]
     Active Substance: ACETAMINOPHEN
     Dosage: UNK
     Route: 065
  413. ACETAMINOPHEN [Concomitant]
     Active Substance: ACETAMINOPHEN
     Dosage: UNK (DOSE 1, 1 AS NECESSARY)
     Route: 065
  414. ACETAMINOPHEN [Concomitant]
     Active Substance: ACETAMINOPHEN
     Dosage: UNK UNK, AS NECESSARY
     Route: 065
  415. ACETAMINOPHEN [Concomitant]
     Active Substance: ACETAMINOPHEN
     Dosage: UNK UNK, AS NECESSARY
     Route: 065
  416. ACETAMINOPHEN [Concomitant]
     Active Substance: ACETAMINOPHEN
     Dosage: UNK UNK, AS NECESSARY
     Route: 065
  417. ACETAMINOPHEN [Concomitant]
     Active Substance: ACETAMINOPHEN
     Dosage: UNK UNK, AS NECESSARY
     Route: 065
  418. ACETAMINOPHEN [Concomitant]
     Active Substance: ACETAMINOPHEN
     Dosage: UNK UNK, AS NECESSARY
     Route: 065
  419. PIPERACILLIN AND TAZOBACTAM [Concomitant]
     Active Substance: PIPERACILLIN SODIUM\TAZOBACTAM SODIUM
     Indication: Prophylaxis
     Dosage: UNK
     Route: 065
     Dates: start: 20210713, end: 20210714
  420. PIPERACILLIN SODIUM [Concomitant]
     Active Substance: PIPERACILLIN SODIUM
     Indication: Prophylaxis
     Dosage: UNK
     Route: 065
     Dates: start: 20210713, end: 20210714
  421. PIPERACILLIN SODIUM [Concomitant]
     Active Substance: PIPERACILLIN SODIUM
     Dosage: UNK
     Route: 065
     Dates: start: 20210713, end: 20210714
  422. PIPERACILLIN SODIUM\TAZOBACTAM SODIUM [Concomitant]
     Active Substance: PIPERACILLIN SODIUM\TAZOBACTAM SODIUM
     Indication: Prophylaxis
     Dosage: UNK
     Route: 065
     Dates: start: 20210713, end: 20210714
  423. AMDINOCILLIN PIVOXIL [Concomitant]
     Active Substance: AMDINOCILLIN PIVOXIL
     Dosage: UNK
     Route: 065
  424. AMDINOCILLIN PIVOXIL [Concomitant]
     Active Substance: AMDINOCILLIN PIVOXIL
     Dosage: UNK
     Route: 065
  425. AMDINOCILLIN PIVOXIL [Concomitant]
     Active Substance: AMDINOCILLIN PIVOXIL
     Dosage: UNK
     Route: 065
  426. AMDINOCILLIN PIVOXIL [Concomitant]
     Active Substance: AMDINOCILLIN PIVOXIL
     Dosage: UNK
     Route: 065
  427. AMDINOCILLIN PIVOXIL [Concomitant]
     Active Substance: AMDINOCILLIN PIVOXIL
     Dosage: UNK
     Route: 065
  428. AMDINOCILLIN PIVOXIL [Concomitant]
     Active Substance: AMDINOCILLIN PIVOXIL
     Dosage: UNK
     Route: 065
  429. AMDINOCILLIN PIVOXIL [Concomitant]
     Active Substance: AMDINOCILLIN PIVOXIL
     Dosage: UNK
     Route: 065
  430. AMDINOCILLIN PIVOXIL [Concomitant]
     Active Substance: AMDINOCILLIN PIVOXIL
     Dosage: UNK
     Route: 065
  431. AMDINOCILLIN PIVOXIL [Concomitant]
     Active Substance: AMDINOCILLIN PIVOXIL
     Dosage: UNK
     Route: 065
  432. AMDINOCILLIN PIVOXIL [Concomitant]
     Active Substance: AMDINOCILLIN PIVOXIL
     Dosage: UNK
     Route: 065
  433. AMDINOCILLIN PIVOXIL [Concomitant]
     Active Substance: AMDINOCILLIN PIVOXIL
     Dosage: UNK
     Route: 065
  434. AMDINOCILLIN PIVOXIL [Concomitant]
     Active Substance: AMDINOCILLIN PIVOXIL
     Dosage: UNK
     Route: 065
  435. AMDINOCILLIN PIVOXIL [Concomitant]
     Active Substance: AMDINOCILLIN PIVOXIL
     Dosage: UNK
     Route: 065
  436. AMDINOCILLIN PIVOXIL [Concomitant]
     Active Substance: AMDINOCILLIN PIVOXIL
     Indication: Product used for unknown indication
     Dosage: UNK
     Route: 065
  437. AMDINOCILLIN PIVOXIL [Concomitant]
     Active Substance: AMDINOCILLIN PIVOXIL
     Dosage: UNK
     Route: 065
  438. AMDINOCILLIN PIVOXIL [Concomitant]
     Active Substance: AMDINOCILLIN PIVOXIL
     Dosage: UNK
     Route: 065
  439. AMDINOCILLIN PIVOXIL [Concomitant]
     Active Substance: AMDINOCILLIN PIVOXIL
     Dosage: UNK
     Route: 065
  440. POTASSIUM CHLORIDE [Concomitant]
     Active Substance: POTASSIUM CHLORIDE
     Indication: Product used for unknown indication
     Dosage: UNK
     Route: 065
     Dates: start: 20210308
  441. POTASSIUM CHLORIDE [Concomitant]
     Active Substance: POTASSIUM CHLORIDE
     Dosage: UNK
     Route: 065
     Dates: start: 20210712
  442. POTASSIUM CHLORIDE [Concomitant]
     Active Substance: POTASSIUM CHLORIDE
     Dosage: UNK
     Route: 065
  443. POTASSIUM CHLORIDE [Concomitant]
     Active Substance: POTASSIUM CHLORIDE
     Dosage: UNK
     Route: 065
  444. PRAMIPEXOLE [Concomitant]
     Active Substance: PRAMIPEXOLE
     Indication: Pain
     Dosage: UNK
     Route: 065
     Dates: start: 20120823
  445. PRAMIPEXOLE [Concomitant]
     Active Substance: PRAMIPEXOLE
     Route: 065
  446. PRAMIPEXOLE [Concomitant]
     Active Substance: PRAMIPEXOLE
     Indication: Product used for unknown indication
     Dosage: UNK
     Route: 065
  447. PRAMIPEXOLE [Concomitant]
     Active Substance: PRAMIPEXOLE
     Dosage: UNK
     Route: 065
     Dates: start: 20120823
  448. PRAMIPEXOLE [Concomitant]
     Active Substance: PRAMIPEXOLE
     Dosage: UNK
     Route: 065
     Dates: start: 20120823
  449. PRAMIPEXOLE [Concomitant]
     Active Substance: PRAMIPEXOLE
     Dosage: UNK
     Route: 065
  450. PRAMIPEXOLE [Concomitant]
     Active Substance: PRAMIPEXOLE
     Dosage: UNK
     Route: 065
  451. PRAMIPEXOLE [Concomitant]
     Active Substance: PRAMIPEXOLE
     Dosage: UNK
     Route: 065
  452. PRAMIPEXOLE [Concomitant]
     Active Substance: PRAMIPEXOLE
     Dosage: UNK
     Route: 065
  453. PRAMIPEXOLE [Concomitant]
     Active Substance: PRAMIPEXOLE
     Dosage: UNK
     Route: 065
  454. PRAMIPEXOLE [Concomitant]
     Active Substance: PRAMIPEXOLE
     Dosage: UNK
     Route: 065
  455. PRAMIPEXOLE [Concomitant]
     Active Substance: PRAMIPEXOLE
     Dosage: UNK
     Route: 065
  456. PREDNISOLONE [Concomitant]
     Active Substance: PREDNISOLONE
     Dosage: 100 MILLIGRAM
     Route: 048
     Dates: start: 20210511, end: 20210513
  457. PREDNISOLONE [Concomitant]
     Active Substance: PREDNISOLONE
     Indication: Product used for unknown indication
     Dosage: UNK
     Route: 065
     Dates: start: 20210705, end: 20210705
  458. PREDNISOLONE [Concomitant]
     Active Substance: PREDNISOLONE
     Dosage: UNK
     Route: 065
     Dates: start: 20210309, end: 20210503
  459. PREDNISOLONE [Concomitant]
     Active Substance: PREDNISOLONE
     Route: 065
     Dates: start: 20210309, end: 20210705
  460. FLUTICASONE FUROATE\VILANTEROL TRIFENATATE [Concomitant]
     Active Substance: FLUTICASONE FUROATE\VILANTEROL TRIFENATATE
     Indication: Product used for unknown indication
     Dosage: UNK
     Route: 065
     Dates: start: 20210708
  461. FLUTICASONE FUROATE\VILANTEROL TRIFENATATE [Concomitant]
     Active Substance: FLUTICASONE FUROATE\VILANTEROL TRIFENATATE
     Route: 065
     Dates: start: 20210708, end: 20211202
  462. ALBUTEROL [Concomitant]
     Active Substance: ALBUTEROL
     Indication: Product used for unknown indication
     Dosage: UNK
     Route: 065
     Dates: start: 20210708
  463. ALBUTEROL [Concomitant]
     Active Substance: ALBUTEROL
     Dosage: UNK
     Route: 065
  464. ALBUTEROL [Concomitant]
     Active Substance: ALBUTEROL
     Dosage: UNK
     Route: 065
  465. ALBUTEROL [Concomitant]
     Active Substance: ALBUTEROL
     Dosage: UNK
     Route: 065
  466. ALBUTEROL [Concomitant]
     Active Substance: ALBUTEROL
     Dosage: UNK
     Route: 065
  467. ALBUTEROL [Concomitant]
     Active Substance: ALBUTEROL
     Dosage: UNK
     Route: 065
     Dates: start: 20210708
  468. ALBUTEROL [Concomitant]
     Active Substance: ALBUTEROL
     Dosage: UNK
     Route: 065
  469. ALBUTEROL [Concomitant]
     Active Substance: ALBUTEROL
     Dosage: UNK
     Route: 065
  470. ALBUTEROL [Concomitant]
     Active Substance: ALBUTEROL
     Dosage: UNK
     Route: 065
  471. PRAMIPEXOLE [Concomitant]
     Active Substance: PRAMIPEXOLE
     Indication: Product used for unknown indication
     Dosage: UNK
     Route: 065
     Dates: start: 20120823
  472. SODIUM BICARBONATE [Concomitant]
     Active Substance: SODIUM BICARBONATE
     Indication: Product used for unknown indication
     Dosage: UNK
     Route: 065
     Dates: start: 20210712
  473. SODIUM CHLORIDE [Concomitant]
     Active Substance: SODIUM CHLORIDE
     Indication: Product used for unknown indication
     Dosage: UNK
     Route: 065
     Dates: start: 20210712
  474. SODIUM BICARBONATE [Concomitant]
     Active Substance: SODIUM BICARBONATE
     Indication: Product used for unknown indication
     Dosage: UNK
     Route: 065
     Dates: start: 20210712
  475. SOLU-MEDROL [Concomitant]
     Active Substance: METHYLPREDNISOLONE SODIUM SUCCINATE
     Indication: Product used for unknown indication
     Dosage: UNK
     Route: 065
     Dates: start: 20210308, end: 20210406
  476. CLEMASTINE FUMARATE [Concomitant]
     Active Substance: CLEMASTINE FUMARATE
     Indication: Product used for unknown indication
     Dosage: UNK
     Route: 065
     Dates: start: 20210509
  477. TAZOBACTAM SODIUM [Concomitant]
     Active Substance: TAZOBACTAM SODIUM
     Indication: Prophylaxis
     Dosage: UNK
     Route: 065
     Dates: start: 20210308
  478. TAZOBACTAM SODIUM [Concomitant]
     Active Substance: TAZOBACTAM SODIUM
     Dosage: UNK
     Route: 065
     Dates: start: 20210713, end: 20210714
  479. TAZOBACTAM SODIUM [Concomitant]
     Active Substance: TAZOBACTAM SODIUM
     Dosage: UNK
     Route: 065
     Dates: start: 20210308
  480. UNIKALK FORTE [Concomitant]
     Indication: Product used for unknown indication
     Dosage: UNK
     Route: 065
     Dates: start: 20210504
  481. VALGANCICLOVIR [Concomitant]
     Active Substance: VALGANCICLOVIR
     Indication: Product used for unknown indication
     Route: 065
  482. VALGANCICLOVIR [Concomitant]
     Active Substance: VALGANCICLOVIR
     Indication: Product used for unknown indication
     Dosage: UNK
     Route: 065
  483. ALBUTEROL [Concomitant]
     Active Substance: ALBUTEROL
     Indication: Product used for unknown indication
     Dosage: UNK
     Route: 065
     Dates: start: 20210708
  484. VILANTEROL TRIFENATATE [Concomitant]
     Active Substance: VILANTEROL TRIFENATATE
     Indication: Product used for unknown indication
     Dosage: UNK
     Route: 065
     Dates: start: 20210708
  485. VILANTEROL TRIFENATATE [Concomitant]
     Active Substance: VILANTEROL TRIFENATATE
     Dosage: UNK
     Route: 065
  486. VILANTEROL TRIFENATATE [Concomitant]
     Active Substance: VILANTEROL TRIFENATATE
     Dosage: UNK; ;
     Route: 065
  487. CALCIUM\CHOLECALCIFEROL [Concomitant]
     Active Substance: CALCIUM\CHOLECALCIFEROL
     Indication: Product used for unknown indication
     Dosage: UNK
     Route: 065
     Dates: start: 20210504

REACTIONS (21)
  - Hydronephrosis [Unknown]
  - Sepsis [Unknown]
  - Blood creatinine increased [Unknown]
  - Cytomegalovirus infection [Recovered/Resolved]
  - Constipation [Recovered/Resolved]
  - Constipation [Recovered/Resolved]
  - Constipation [Recovered/Resolved]
  - Constipation [Unknown]
  - Constipation [Unknown]
  - Constipation [Recovered/Resolved]
  - Abdominal pain [Not Recovered/Not Resolved]
  - Abdominal pain [Recovered/Resolved]
  - Abdominal pain [Recovered/Resolved]
  - Abdominal pain [Recovered/Resolved]
  - Abdominal pain [Recovered/Resolved]
  - Abdominal pain [Recovered/Resolved]
  - Abdominal pain [Recovered/Resolved]
  - Off label use [Unknown]
  - Off label use [Unknown]
  - Product use issue [Unknown]
  - Diarrhoea [Recovered/Resolved]

NARRATIVE: CASE EVENT DATE: 20200212
